FAERS Safety Report 4264603-X (Version None)
Quarter: 2004Q1

REPORT INFORMATION
  Report Type: 
  Country: None (occurrence: None)
  Receive Date: 20040102
  Receipt Date: 20031224
  Transmission Date: 20041129
  Serious: Yes (Death, Hospitalization)
  Sender: FDA-Public Use
  Company Number: HQWYE643016DEC03

PATIENT
  Age: 60 Year
  Sex: Male
  Weight: 130.4 kg

DRUGS (31)
  1. MYLOTARG [Suspect]
     Indication: ACUTE MYELOID LEUKAEMIA
     Dosage: 9 MG/M^2 1X PER 1 DAY, INTRAVENOUS
     Route: 042
     Dates: start: 20030916, end: 20030916
  2. MYLOTARG [Suspect]
     Indication: ACUTE MYELOID LEUKAEMIA
     Dosage: 9 MG/M^2 1X PER 1 DAY, INTRAVENOUS
     Route: 042
     Dates: start: 20030930, end: 20030930
  3. INSULIN [Concomitant]
  4. ACYCLOVIR [Concomitant]
  5. ALLOPURINOL [Concomitant]
  6. NORVASC [Concomitant]
  7. FIBRALAX (BRAN) [Concomitant]
  8. CIPRO [Concomitant]
  9. KLONOPIN [Concomitant]
  10. CATAPRES [Concomitant]
  11. BENADRYL [Concomitant]
  12. DIFLUCAN [Concomitant]
  13. LASIX [Concomitant]
  14. HEPARIN [Concomitant]
  15. TRANDATE [Concomitant]
  16. ATIVAN [Concomitant]
  17. MEVACOR [Concomitant]
  18. SANDOSTATIN [Concomitant]
  19. PROTONIX [Concomitant]
  20. ZOSYN [Concomitant]
  21. POTASSIUM CHLORIDE [Concomitant]
  22. SIMETHICONE (DIMETICONE, ACTIVATED) [Concomitant]
  23. URSODIOL (URSODEOXYCHOLIC ACID) [Concomitant]
  24. DIOVAN [Concomitant]
  25. VANCOMYCIN [Concomitant]
  26. COUMADIN [Concomitant]
  27. LANTUS [Concomitant]
  28. TYLENOL [Concomitant]
  29. AMARYL [Concomitant]
  30. PHENERGAN [Concomitant]
  31. DARVON [Concomitant]

REACTIONS (9)
  - ACUTE MYELOID LEUKAEMIA [None]
  - ASCITES [None]
  - DIALYSIS [None]
  - HEPATIC STEATOSIS [None]
  - HEPATOMEGALY [None]
  - HYPERTENSION [None]
  - MALIGNANT NEOPLASM PROGRESSION [None]
  - RENAL FAILURE CHRONIC [None]
  - WEIGHT INCREASED [None]
